FAERS Safety Report 16902296 (Version 3)
Quarter: 2020Q1

REPORT INFORMATION
  Report Type: Spontaneous
  Country: ES (occurrence: ES)
  Receive Date: 20191010
  Receipt Date: 20200109
  Transmission Date: 20200409
  Serious: Yes (Other)
  Sender: FDA-Public Use
  Company Number: ES-TEVA-2019-ES-1118909

PATIENT
  Age: 53 Year
  Sex: Male

DRUGS (2)
  1. IBUPROFENO 600 MG COMPRIMIDO [Suspect]
     Active Substance: IBUPROFEN
     Indication: VIRAL INFECTION
     Dosage: 600 MG
     Route: 048
     Dates: start: 20190913, end: 20190917
  2. RAMIPRIL 2,5 MG COMPRIMIDO [Concomitant]
     Active Substance: RAMIPRIL

REACTIONS (4)
  - Conjunctival hyperaemia [Recovering/Resolving]
  - Rash [Recovered/Resolved]
  - Uveitis [Unknown]
  - Tubulointerstitial nephritis [Recovering/Resolving]

NARRATIVE: CASE EVENT DATE: 20190917
